FAERS Safety Report 5072358-4 (Version None)
Quarter: 2006Q3

REPORT INFORMATION
  Report Type: 
  Country: None (occurrence: None)
  Receive Date: 20060807
  Receipt Date: 20060731
  Transmission Date: 20061208
  Serious: Yes (Other)
  Sender: FDA-Public Use
  Company Number: US-JNJFOC-20041004197

PATIENT
  Age: 39 Year
  Sex: Male

DRUGS (7)
  1. DURAGESIC-100 [Suspect]
     Route: 062
  2. DURAGESIC-100 [Suspect]
     Route: 062
  3. DURAGESIC-100 [Suspect]
     Route: 062
  4. DURAGESIC-100 [Suspect]
     Route: 062
  5. DURAGESIC-100 [Suspect]
     Route: 062
  6. DURAGESIC-100 [Suspect]
     Indication: PAIN
     Route: 062
  7. LORTAB [Concomitant]
     Indication: BREAKTHROUGH PAIN
     Route: 048

REACTIONS (23)
  - AMNESIA [None]
  - ANOREXIA [None]
  - ANXIETY [None]
  - CEREBROVASCULAR ACCIDENT [None]
  - COORDINATION ABNORMAL [None]
  - DEVICE FAILURE [None]
  - DISORIENTATION [None]
  - DISTURBANCE IN ATTENTION [None]
  - DYSPHEMIA [None]
  - HEADACHE [None]
  - HYPERSOMNIA [None]
  - HYPOXIA [None]
  - INSOMNIA [None]
  - MAJOR DEPRESSION [None]
  - MYDRIASIS [None]
  - OVERDOSE [None]
  - PANIC ATTACK [None]
  - PHOTOPHOBIA [None]
  - PSYCHOMOTOR SKILLS IMPAIRED [None]
  - PUPILS UNEQUAL [None]
  - TREMOR [None]
  - VISUAL FIELD DEFECT [None]
  - WEIGHT DECREASED [None]
